FAERS Safety Report 8472791-4 (Version None)
Quarter: 2012Q2

REPORT INFORMATION
  Report Type: 
  Country: None (occurrence: None)
  Receive Date: 20120627
  Receipt Date: 20120618
  Transmission Date: 20120825
  Serious: Yes (Other)
  Sender: FDA-Public Use
  Company Number: US-ASTRAZENECA-2012SE40820

PATIENT

DRUGS (1)
  1. SYMBICORT [Suspect]
     Dosage: 2 PUFFS IN THE MORNING AND 2 PUFFS IN THE EVENING
     Route: 055

REACTIONS (19)
  - SPUTUM DISCOLOURED [None]
  - ORAL CANDIDIASIS [None]
  - HYPERSENSITIVITY [None]
  - GROWTH RETARDATION [None]
  - OSTEOPOROSIS [None]
  - IMMUNE SYSTEM DISORDER [None]
  - OROPHARYNGEAL PAIN [None]
  - HYPERTENSION [None]
  - RESPIRATORY DISORDER [None]
  - CHILLS [None]
  - ASTHMA [None]
  - PYREXIA [None]
  - EYE DISORDER [None]
  - BLOOD POTASSIUM DECREASED [None]
  - HEADACHE [None]
  - CARDIAC DISORDER [None]
  - DIABETES MELLITUS [None]
  - VASODILATATION [None]
  - COUGH [None]
